FAERS Safety Report 7273549-4 (Version None)
Quarter: 2011Q1

REPORT INFORMATION
  Report Type: 
  Country: None (occurrence: None)
  Receive Date: 20110203
  Receipt Date: 20100928
  Transmission Date: 20110831
  Serious: No
  Sender: FDA-Public Use
  Company Number: US-ABBOTT-10P-163-0673974-00

PATIENT
  Sex: Female

DRUGS (3)
  1. SYNTHROID [Suspect]
  2. DRONEDARONE HCL [Suspect]
     Indication: HEART RATE INCREASED
  3. DRONEDARONE HCL [Suspect]
     Indication: TACHYCARDIA
     Route: 048
     Dates: start: 20100618

REACTIONS (1)
  - PALPITATIONS [None]
